FAERS Safety Report 11835105 (Version 1)
Quarter: 2015Q4

REPORT INFORMATION
  Report Type: Spontaneous
  Country: US (occurrence: US)
  Receive Date: 20151215
  Receipt Date: 20151215
  Transmission Date: 20160305
  Serious: No
  Sender: FDA-Public Use
  Company Number: US-ASTRAZENECA-2015SF22472

PATIENT
  Age: 9 Year
  Sex: Female

DRUGS (3)
  1. PULMICORT FLEXHALER [Suspect]
     Active Substance: BUDESONIDE
     Indication: IRRITABILITY
     Route: 055
  2. SINGULAIR [Concomitant]
     Active Substance: MONTELUKAST SODIUM
     Route: 048
  3. PULMICORT FLEXHALER [Suspect]
     Active Substance: BUDESONIDE
     Indication: COUGH
     Route: 055

REACTIONS (7)
  - Rhinorrhoea [Unknown]
  - Product use issue [Unknown]
  - Dyspnoea [Unknown]
  - Off label use [Unknown]
  - Pyrexia [Unknown]
  - Malaise [Unknown]
  - Nasopharyngitis [Unknown]
